FAERS Safety Report 8663411 (Version 2)
Quarter: 2013Q4

REPORT INFORMATION
  Report Type: Report from Study
  Country: JP (occurrence: JP)
  Receive Date: 20120713
  Receipt Date: 20131101
  Transmission Date: 20140711
  Serious: Yes (Hospitalization)
  Sender: FDA-Public Use
  Company Number: JP-009507513-1207JPN001502

PATIENT
  Age: 68 Year
  Sex: Male
  Weight: 63 kg

DRUGS (9)
  1. PEGINTRON [Suspect]
     Indication: HEPATITIS C
     Dosage: 1.0MCG/KG/WEEK
     Route: 058
     Dates: start: 20120508, end: 20120515
  2. PEGINTRON [Suspect]
     Dosage: 1.67MCG/KG/WEEK
     Route: 058
     Dates: start: 20120522, end: 20120522
  3. PEGINTRON [Suspect]
     Dosage: 1.5MCG/KG/WEEK
     Route: 058
     Dates: start: 20120528
  4. REBETOL [Suspect]
     Indication: HEPATITIS C
     Dosage: 800 MG, ONCE
     Route: 048
     Dates: start: 20120508, end: 20120527
  5. REBETOL [Suspect]
     Dosage: 400 MG, ONCE
     Route: 048
     Dates: start: 20120528, end: 20120531
  6. REBETOL [Suspect]
     Dosage: 200 MG, ONCE
     Route: 048
     Dates: start: 20120601
  7. TELAPREVIR [Suspect]
     Indication: HEPATITIS C
     Route: 048
     Dates: start: 20120508
  8. KARY UNI [Concomitant]
     Indication: CATARACT
     Dosage: PROPER QUANTITY/DAY
     Route: 047
  9. MIKELAN LA [Concomitant]
     Indication: GLAUCOMA
     Dosage: PROPER QUANTITY/DAY
     Route: 047

REACTIONS (1)
  - Malaise [Recovering/Resolving]
